FAERS Safety Report 25142840 (Version 1)
Quarter: 2025Q1

REPORT INFORMATION
  Report Type: Spontaneous
  Country: DE (occurrence: DE)
  Receive Date: 20250331
  Receipt Date: 20250331
  Transmission Date: 20250409
  Serious: Yes (Other)
  Sender: JOHNSON AND JOHNSON
  Company Number: None

PATIENT
  Age: 94 Year
  Sex: Male

DRUGS (1)
  1. XARELTO [Suspect]
     Active Substance: RIVAROXABAN
     Indication: Thrombosis
     Dosage: 0.5 DF, QD; TABLET DIVIDED INTO 1/2 DF (DOSAGE FORM)
     Route: 048

REACTIONS (5)
  - Renal impairment [Not Recovered/Not Resolved]
  - Gastrooesophageal reflux disease [Not Recovered/Not Resolved]
  - Visual acuity reduced [Not Recovered/Not Resolved]
  - Speech disorder [Not Recovered/Not Resolved]
  - Wrong technique in product usage process [Unknown]
